FAERS Safety Report 9341772 (Version 1)
Quarter: 2013Q2

REPORT INFORMATION
  Report Type: Spontaneous
  Country: US (occurrence: None)
  Receive Date: 20130606
  Receipt Date: 20130606
  Transmission Date: 20140414
  Serious: Yes (Other)
  Sender: FDA-Public Use
  Company Number: CA13-0272

PATIENT
  Age: 50 Year
  Sex: Female
  Weight: 54 kg

DRUGS (2)
  1. ENOXAPARIN SODIUM [Suspect]
     Indication: PULMONARY EMBOLISM
     Dates: end: 20130527
  2. ENOXAPARIN SODIUM [Suspect]
     Indication: THROMBOSIS
     Dates: end: 20130527

REACTIONS (2)
  - Inappropriate schedule of drug administration [None]
  - Drug dose omission [None]
